FAERS Safety Report 14690856 (Version 2)
Quarter: 2019Q2

REPORT INFORMATION
  Report Type: Report from Study
  Country: US (occurrence: US)
  Receive Date: 20180328
  Receipt Date: 20190501
  Transmission Date: 20190711
  Serious: Yes (Death, Life-Threatening, Hospitalization)
  Sender: FDA-Public Use
  Company Number: US-CELGENEUS-USA-20180309208

PATIENT
  Age: 47 Year
  Sex: Male
  Weight: 124.8 kg

DRUGS (1)
  1. VIDAZA [Suspect]
     Active Substance: AZACITIDINE
     Indication: MYELODYSPLASTIC SYNDROME
     Dosage: 75 MILLIGRAM/SQ. METER
     Route: 065
     Dates: start: 20180219, end: 20180223

REACTIONS (1)
  - Pneumococcal sepsis [Fatal]

NARRATIVE: CASE EVENT DATE: 20180316
